FAERS Safety Report 14403004 (Version 1)
Quarter: 2018Q1

REPORT INFORMATION
  Report Type: Spontaneous
  Country: IL (occurrence: IL)
  Receive Date: 20180117
  Receipt Date: 20180117
  Transmission Date: 20180509
  Serious: Yes (Other)
  Sender: FDA-Public Use
  Company Number: IL-PFIZER INC-2018019521

PATIENT
  Age: 31 Year
  Sex: Female

DRUGS (1)
  1. EPANUTIN [Suspect]
     Active Substance: PHENYTOIN SODIUM
     Dosage: 300 UNK, UNK
     Dates: start: 20170505

REACTIONS (10)
  - Drug level increased [Unknown]
  - Speech disorder [Unknown]
  - Nausea [Unknown]
  - Disturbance in attention [Unknown]
  - Balance disorder [Unknown]
  - Tremor [Unknown]
  - Confusional state [Unknown]
  - Memory impairment [Unknown]
  - Vertigo [Unknown]
  - Diplopia [Unknown]
